FAERS Safety Report 11809542 (Version 1)
Quarter: 2015Q4

REPORT INFORMATION
  Report Type: Spontaneous
  Country: US (occurrence: US)
  Receive Date: 20151208
  Receipt Date: 20151208
  Transmission Date: 20160305
  Serious: No
  Sender: FDA-Public Use
  Company Number: US-LEO PHARMA-238796

PATIENT
  Age: 60 Year
  Sex: Male

DRUGS (1)
  1. PICATO [Suspect]
     Active Substance: INGENOL MEBUTATE
     Indication: ACTINIC KERATOSIS
     Route: 061
     Dates: start: 20151128

REACTIONS (9)
  - Application site erythema [Not Recovered/Not Resolved]
  - Application site erosion [Not Recovered/Not Resolved]
  - Application site swelling [Not Recovered/Not Resolved]
  - Application site pruritus [Not Recovered/Not Resolved]
  - Drug administration error [Unknown]
  - Application site vesicles [Not Recovered/Not Resolved]
  - Application site pain [Recovering/Resolving]
  - Application site irritation [Not Recovered/Not Resolved]
  - Incorrect drug administration duration [Unknown]
